FAERS Safety Report 6444257-4 (Version None)
Quarter: 2009Q4

REPORT INFORMATION
  Report Type: 
  Country: None (occurrence: None)
  Receive Date: 20091118
  Receipt Date: 20091104
  Transmission Date: 20100525
  Serious: Yes (Other)
  Sender: FDA-Public Use
  Company Number: CA-ROCHE-668627

PATIENT
  Age: 5 Year
  Sex: Male
  Weight: 15 kg

DRUGS (3)
  1. TAMIFLU [Suspect]
     Indication: INFLUENZA
     Route: 048
     Dates: start: 20091030, end: 20091101
  2. FLOVENT [Concomitant]
     Indication: ASTHMA
     Dosage: ROUTE: INHALED.
     Route: 055
  3. VENTOLIN [Concomitant]
     Indication: ASTHMA
     Dosage: ROUTE; INHALED.
     Route: 055

REACTIONS (2)
  - HALLUCINATION [None]
  - NIGHTMARE [None]
